FAERS Safety Report 11570102 (Version 3)
Quarter: 2015Q4

REPORT INFORMATION
  Report Type: Spontaneous
  Country: US (occurrence: US)
  Receive Date: 20150929
  Receipt Date: 20151116
  Transmission Date: 20160304
  Serious: No
  Sender: FDA-Public Use
  Company Number: US-PFIZER INC-2015320278

PATIENT
  Age: 75 Year
  Sex: Female
  Weight: 75 kg

DRUGS (19)
  1. SIMVASTATIN. [Suspect]
     Active Substance: SIMVASTATIN
     Indication: BLOOD TRIGLYCERIDES
  2. FOSINOPRIL [Concomitant]
     Active Substance: FOSINOPRIL
     Indication: HYPERTENSION
     Dosage: 20 MG, DAILY
     Route: 048
  3. GEMFIBROZIL. [Suspect]
     Active Substance: GEMFIBROZIL
     Indication: BLOOD TRIGLYCERIDES
  4. SIMVASTATIN. [Suspect]
     Active Substance: SIMVASTATIN
     Indication: BLOOD CHOLESTEROL INCREASED
     Dosage: 20 MG, 1X/DAY
  5. HYDROCHLOROTHIAZIDE. [Concomitant]
     Active Substance: HYDROCHLOROTHIAZIDE
     Indication: OEDEMA
     Dosage: 25 MG, DAILY
     Route: 048
  6. GABAPENTIN. [Concomitant]
     Active Substance: GABAPENTIN
     Indication: PARKINSON^S DISEASE
     Dosage: 300 MG, 2X/DAY
  7. CLONAZEPAM. [Concomitant]
     Active Substance: CLONAZEPAM
     Indication: MUSCLE CONTRACTURE
     Dosage: 0.5 MG, 1X/DAY AT BEDTIME, UP TO 2 TABLETS IF THE CONTRACTURE AND SPASM GET WORSE
  8. CLONAZEPAM. [Concomitant]
     Active Substance: CLONAZEPAM
     Indication: MUSCLE SPASMS
  9. BLACK COHOSH [Concomitant]
     Active Substance: BLACK COHOSH
     Indication: MENOPAUSE
     Dosage: 540 MG, 1X/DAY
  10. ATENOLOL. [Concomitant]
     Active Substance: ATENOLOL
     Indication: HYPERTENSION
     Dosage: 50 MG, DAILY
     Route: 048
  11. ALLOPURINOL. [Concomitant]
     Active Substance: ALLOPURINOL
     Indication: GOUT
     Dosage: 200 MG, DAILY
     Route: 048
  12. SINEMET [Concomitant]
     Active Substance: CARBIDOPA\LEVODOPA
     Indication: PARKINSON^S DISEASE
     Dosage: 100 MG, 3X/DAY
     Route: 048
  13. GABAPENTIN. [Concomitant]
     Active Substance: GABAPENTIN
     Indication: PAIN IN EXTREMITY
  14. GABAPENTIN. [Concomitant]
     Active Substance: GABAPENTIN
     Indication: BACK PAIN
  15. ALEVE [Concomitant]
     Active Substance: NAPROXEN SODIUM
     Indication: ARTHRITIS
     Dosage: 1 OR 2 TABLETS
  16. GABAPENTIN. [Concomitant]
     Active Substance: GABAPENTIN
     Indication: NEUROPATHY PERIPHERAL
  17. ASPIRIN. [Concomitant]
     Active Substance: ASPIRIN
     Indication: ARTHRITIS
     Dosage: UNK
  18. GEMFIBROZIL. [Suspect]
     Active Substance: GEMFIBROZIL
     Indication: BLOOD CHOLESTEROL INCREASED
     Dosage: 600 MG, 2X/DAY
     Route: 048
  19. HYDROCHLOROTHIAZIDE. [Concomitant]
     Active Substance: HYDROCHLOROTHIAZIDE
     Indication: HYPERTENSION

REACTIONS (1)
  - Drug effect incomplete [Unknown]
